FAERS Safety Report 23626127 (Version 1)
Quarter: 2024Q1

REPORT INFORMATION
  Report Type: Spontaneous
  Country: US (occurrence: None)
  Receive Date: 20240312
  Receipt Date: 20240312
  Transmission Date: 20240410
  Serious: Yes (Death)
  Sender: FDA-Public Use
  Company Number: None

PATIENT
  Age: 82 Year
  Sex: Male

DRUGS (1)
  1. OFEV [Suspect]
     Active Substance: NINTEDANIB
     Indication: Idiopathic pulmonary fibrosis
     Dosage: OTHER FREQUENCY : BID;?
     Route: 048
     Dates: start: 20210528, end: 20231228

REACTIONS (2)
  - Disease progression [None]
  - Idiopathic pulmonary fibrosis [None]

NARRATIVE: CASE EVENT DATE: 20240120
